FAERS Safety Report 7396328-6 (Version None)
Quarter: 2011Q1

REPORT INFORMATION
  Report Type: 
  Country: None (occurrence: None)
  Receive Date: 20110331
  Receipt Date: 20110331
  Transmission Date: 20110831
  Serious: Yes (Death)
  Sender: FDA-Public Use
  Company Number: None

PATIENT
  Age: 82 Year
  Sex: Female

DRUGS (1)
  1. DR. FRANK'S JOINT AND MUSCLE PAIN RELIEF [Suspect]
     Indication: ARTHRALGIA
     Dosage: 4 SPRAYS 3X'S/DAY

REACTIONS (1)
  - RENAL IMPAIRMENT [None]
